FAERS Safety Report 7088552-7 (Version None)
Quarter: 2010Q4

REPORT INFORMATION
  Report Type: 
  Country: None (occurrence: None)
  Receive Date: 20101108
  Receipt Date: 20101028
  Transmission Date: 20110411
  Serious: Yes (Other)
  Sender: FDA-Public Use
  Company Number: DE-ASTRAZENECA-2010SE41544

PATIENT
  Age: 19447 Day
  Sex: Female

DRUGS (6)
  1. SEROQUEL XR [Suspect]
     Indication: BIPOLAR DISORDER
     Route: 048
     Dates: start: 20090825, end: 20091106
  2. SEROQUEL XR [Suspect]
     Route: 048
     Dates: start: 20091107, end: 20100101
  3. SEROQUEL XR [Suspect]
     Route: 048
     Dates: start: 20100101
  4. VALPROAT [Suspect]
     Indication: BIPOLAR DISORDER
     Route: 048
     Dates: start: 20080101
  5. EUTHYROX [Concomitant]
     Route: 048
  6. PANTOPRAZOLE SODIUM [Concomitant]
     Route: 048

REACTIONS (1)
  - NEUTROPENIA [None]
